FAERS Safety Report 9152876 (Version 1)
Quarter: 2013Q1

REPORT INFORMATION
  Report Type: Spontaneous
  Country: US (occurrence: US)
  Receive Date: 20130309
  Receipt Date: 20130309
  Transmission Date: 20140127
  Serious: Yes (Other)
  Sender: FDA-Public Use
  Company Number: US-TEVA-390124USA

PATIENT
  Sex: Female

DRUGS (2)
  1. FENTORA [Suspect]
     Indication: PAIN
  2. BENADRYL [Concomitant]

REACTIONS (5)
  - Staphylococcal infection [Unknown]
  - Rash [Unknown]
  - Fatigue [Unknown]
  - Drug ineffective for unapproved indication [Unknown]
  - Off label use [Unknown]
